FAERS Safety Report 7582849-X (Version None)
Quarter: 2011Q2

REPORT INFORMATION
  Report Type: 
  Country: None (occurrence: None)
  Receive Date: 20110630
  Receipt Date: 20110627
  Transmission Date: 20111010
  Serious: Yes (Death, Life-Threatening)
  Sender: FDA-Public Use
  Company Number: JP-GENZYME-FLUD-1000554

PATIENT
  Sex: Male
  Weight: 69 kg

DRUGS (8)
  1. FLUDARA [Suspect]
     Indication: PREMEDICATION
     Dosage: UNK
     Route: 065
     Dates: start: 20100303, end: 20100307
  2. METHYLPREDNISOLONE SODIUM SUCCINATE [Concomitant]
     Indication: PREMEDICATION
     Dosage: UNK
     Route: 065
     Dates: start: 20100308, end: 20100326
  3. MELPHALAN HYDROCHLORIDE [Concomitant]
     Indication: PREMEDICATION
     Dosage: UNK
     Route: 065
     Dates: start: 20100305, end: 20100306
  4. FLUDARA [Suspect]
     Indication: ACUTE MYELOID LEUKAEMIA
  5. TACROLIMUS [Concomitant]
     Indication: PROPHYLAXIS AGAINST GRAFT VERSUS HOST DISEASE
     Dosage: UNK
     Route: 065
     Dates: start: 20100309, end: 20100326
  6. DORIPENEM HYDRATE [Concomitant]
     Indication: SEPSIS
     Dosage: UNK
     Route: 065
     Dates: start: 20100314, end: 20100326
  7. THYMOGLOBULIN [Suspect]
     Indication: PREMEDICATION
     Dosage: 167.5 MG, ONCE
     Route: 042
     Dates: start: 20100308, end: 20100308
  8. THYMOGLOBULIN [Suspect]
     Indication: ACUTE MYELOID LEUKAEMIA

REACTIONS (3)
  - THROMBOTIC MICROANGIOPATHY [None]
  - SEPSIS [None]
  - PULMONARY HAEMORRHAGE [None]
